FAERS Safety Report 17879566 (Version 1)
Quarter: 2020Q2

REPORT INFORMATION
  Report Type: Spontaneous
  Country: US (occurrence: US)
  Receive Date: 20200610
  Receipt Date: 20200610
  Transmission Date: 20200714
  Serious: No
  Sender: FDA-Public Use
  Company Number: US-MYLANLABS-2020M1054465

PATIENT
  Sex: Female

DRUGS (1)
  1. FENTANYL TRANSDERMAL SYSTEM [Suspect]
     Active Substance: FENTANYL
     Indication: NEURALGIA
     Dosage: 50 MICROGRAM, Q3D
     Route: 062

REACTIONS (2)
  - Wrong technique in product usage process [Recovered/Resolved]
  - Product adhesion issue [Unknown]
